FAERS Safety Report 10390597 (Version 2)
Quarter: 2015Q1

REPORT INFORMATION
  Report Type: Spontaneous
  Country: GB (occurrence: None)
  Receive Date: 20140814
  Receipt Date: 20150205
  Transmission Date: 20150720
  Serious: Yes (Hospitalization)
  Sender: FDA-Public Use
  Company Number: 2480646

PATIENT
  Age: 28 Year
  Sex: Male

DRUGS (3)
  1. CEFTRIAXONE SODIUM. [Suspect]
     Active Substance: CEFTRIAXONE SODIUM
     Indication: SOFT TISSUE INFECTION
     Route: 040
     Dates: start: 20140718, end: 20140718
  2. FLUCLOXACILLIN [Concomitant]
     Active Substance: FLUCLOXACILLIN
  3. BENZYLPENICILLIN [Concomitant]
     Active Substance: PENICILLIN G

REACTIONS (3)
  - Nausea [None]
  - Paraesthesia [None]
  - Tachycardia [None]

NARRATIVE: CASE EVENT DATE: 20140718
